FAERS Safety Report 5274862-2 (Version None)
Quarter: 2007Q1

REPORT INFORMATION
  Report Type: 
  Country: None (occurrence: None)
  Receive Date: 20061208
  Receipt Date: 20060505
  Transmission Date: 20070707
  Serious: Yes (Hospitalization)
  Sender: FDA-Public Use
  Company Number: 2006UW08582

PATIENT
  Age: 50 Year
  Sex: Male

DRUGS (4)
  1. CRESTOR [Suspect]
     Dosage: 5 MG QOD PO
     Route: 048
     Dates: start: 20060401
  2. QUESTRAN [Concomitant]
  3. LISINOPRIL [Concomitant]
  4. ALLOPURINOL [Concomitant]

REACTIONS (1)
  - ANAEMIA [None]
